FAERS Safety Report 7183609-4 (Version None)
Quarter: 2010Q4

REPORT INFORMATION
  Report Type: 
  Country: None (occurrence: None)
  Receive Date: 20101220
  Receipt Date: 20101220
  Transmission Date: 20110411
  Serious: Yes (Hospitalization)
  Sender: FDA-Public Use
  Company Number: None

PATIENT
  Age: 83 Year
  Sex: Female

DRUGS (16)
  1. COUMADIN [Suspect]
     Indication: ATRIAL FIBRILLATION
     Dosage: 4MG DAILY PO  CHRONIC
     Route: 048
  2. IRON [Concomitant]
  3. TRILEPTAL [Concomitant]
  4. HYDROCODONE BITARTRATE + ACETAMINOPHEN [Concomitant]
  5. HYDRALAZINE [Concomitant]
  6. LABETALOL HCL [Concomitant]
  7. NEURONTIN [Concomitant]
  8. ZOCOR [Concomitant]
  9. PEPCID [Concomitant]
  10. LASIX [Concomitant]
  11. COZAAR [Concomitant]
  12. CLONIDINE [Concomitant]
  13. OS-CAL [Concomitant]
  14. METAMUCIL-2 [Concomitant]
  15. ASA [Concomitant]
  16. PLAVIX [Concomitant]

REACTIONS (3)
  - ACUTE MYOCARDIAL INFARCTION [None]
  - COAGULOPATHY [None]
  - INTERNATIONAL NORMALISED RATIO INCREASED [None]
